FAERS Safety Report 5245467-4 (Version None)
Quarter: 2007Q1

REPORT INFORMATION
  Report Type: 
  Country: None (occurrence: None)
  Receive Date: 20070223
  Receipt Date: 20070216
  Transmission Date: 20070707
  Serious: Yes (Other)
  Sender: FDA-Public Use
  Company Number: US-ELI_LILLY_AND_COMPANY-US200701005718

PATIENT
  Age: 66 Year
  Sex: Female

DRUGS (11)
  1. ALIMTA [Suspect]
     Indication: NON-SMALL CELL LUNG CANCER
     Dosage: 500 MG/KG, UNK
     Dates: start: 20070125
  2. AVASTIN [Concomitant]
     Indication: NON-SMALL CELL LUNG CANCER
     Dosage: 15 MG/KG, UNK
  3. VITAMIN B-12 [Concomitant]
     Indication: SUPPLEMENTATION THERAPY
     Dosage: 1000 MG, UNK
     Route: 058
  4. FOLIC ACID [Concomitant]
     Indication: SUPPLEMENTATION THERAPY
     Dosage: 1 MG, DAILY (1/D)
  5. DEXAMETHASONE [Concomitant]
     Indication: SUPPLEMENTATION THERAPY
     Dosage: 4 MG, 2/D
     Route: 048
  6. CRESTOR [Concomitant]
     Dosage: UNK, DAILY (1/D)
  7. PLAVIX [Concomitant]
     Dosage: 75 MG, DAILY (1/D)
  8. TOPROL-XL [Concomitant]
     Dosage: 50 MG, 3/D
  9. LORAZEPAM [Concomitant]
     Dosage: 1 MG, 4/D
     Route: 048
  10. MEGACE [Concomitant]
     Dosage: 10 ML, DAILY (1/D)
     Route: 048
  11. BENADRYL /00000402/ [Concomitant]
     Indication: RASH

REACTIONS (1)
  - RASH [None]
